FAERS Safety Report 21245174 (Version 2)
Quarter: 2022Q3

REPORT INFORMATION
  Report Type: Spontaneous
  Country: JP (occurrence: JP)
  Receive Date: 20220823
  Receipt Date: 20220912
  Transmission Date: 20221026
  Serious: Yes (Death, Other)
  Sender: FDA-Public Use
  Company Number: JP-MSD-M2022-34394

PATIENT
  Age: 84 Year
  Sex: Male

DRUGS (1)
  1. LAGEVRIO [Suspect]
     Active Substance: MOLNUPIRAVIR
     Indication: COVID-19 treatment
     Dosage: 800 MILLIGRAM, BID
     Route: 048
     Dates: start: 20220815, end: 20220816

REACTIONS (3)
  - Depressed level of consciousness [Fatal]
  - Aspiration [Fatal]
  - Asphyxia [Fatal]

NARRATIVE: CASE EVENT DATE: 20220816
